FAERS Safety Report 8118720-4 (Version None)
Quarter: 2012Q1

REPORT INFORMATION
  Report Type: 
  Country: None (occurrence: None)
  Receive Date: 20120207
  Receipt Date: 20120201
  Transmission Date: 20120608
  Serious: Yes (Hospitalization)
  Sender: FDA-Public Use
  Company Number: US-BAYER-2012-011300

PATIENT
  Age: 39 Year
  Sex: Female
  Weight: 75 kg

DRUGS (2)
  1. LOVENOX [Concomitant]
     Indication: HIGH RISK PREGNANCY
  2. YAZ [Suspect]
     Indication: CONTRACEPTION
     Dosage: UNK
     Dates: start: 20070723, end: 20071108

REACTIONS (2)
  - PULMONARY EMBOLISM [None]
  - PAIN [None]
